FAERS Safety Report 6458749-5 (Version None)
Quarter: 2009Q4

REPORT INFORMATION
  Report Type: 
  Country: None (occurrence: None)
  Receive Date: 20091127
  Receipt Date: 20091119
  Transmission Date: 20100525
  Serious: Yes (Other)
  Sender: FDA-Public Use
  Company Number: US-ROCHE-669980

PATIENT
  Age: 11 Year
  Sex: Male

DRUGS (4)
  1. GANCICLOVIR SODIUM [Suspect]
     Dosage: ADMINISTERED FOR THREE WEEKS
     Route: 065
     Dates: start: 20070101
  2. GANCICLOVIR SODIUM [Suspect]
     Dosage: ADMINISTERED FOR 12 WEEKS
     Route: 065
  3. CYCLOPHOSPHAMIDE [Concomitant]
  4. ANTI-THYMOCYTE GLOBULIN NOS [Concomitant]

REACTIONS (1)
  - CHRONIC GRAFT VERSUS HOST DISEASE [None]
